FAERS Safety Report 9236703 (Version 2)
Quarter: 2013Q2

REPORT INFORMATION
  Report Type: Spontaneous
  Country: US (occurrence: US)
  Receive Date: 20130417
  Receipt Date: 20130502
  Transmission Date: 20140414
  Serious: Yes (Death)
  Sender: FDA-Public Use
  Company Number: US-GLAXOSMITHKLINE-A1020088A

PATIENT
  Age: 73 Year
  Sex: Male

DRUGS (6)
  1. VOTRIENT [Suspect]
     Indication: RENAL CANCER
     Dosage: 800MG PER DAY
     Route: 048
     Dates: start: 20121130, end: 20130320
  2. B COMPLEX [Concomitant]
  3. MERCAPTOPURINE [Concomitant]
  4. COLESTIPOL HYDROCHLORIDE [Concomitant]
  5. ASACOL [Concomitant]
  6. AMLODIPINE BESYLATE [Concomitant]

REACTIONS (1)
  - Renal cancer [Fatal]
